FAERS Safety Report 24086585 (Version 8)
Quarter: 2024Q4

REPORT INFORMATION
  Report Type: Spontaneous
  Country: CA (occurrence: CA)
  Receive Date: 20240713
  Receipt Date: 20241221
  Transmission Date: 20250115
  Serious: Yes (Hospitalization, Other)
  Sender: CELLTRION
  Company Number: CA-PFIZER INC-202400208660

PATIENT

DRUGS (9)
  1. INFLECTRA [Suspect]
     Active Substance: INFLIXIMAB-DYYB
     Indication: Uveitis
     Dosage: 5 MG/KG, Q 0, 2, 6, THEN EVERY 4 WEEKS
     Route: 042
     Dates: start: 20240327
  2. INFLECTRA [Suspect]
     Active Substance: INFLIXIMAB-DYYB
     Dosage: 5 MG/KG, Q 0, 2, 6, THEN EVERY 4 WEEKS
     Route: 042
     Dates: start: 20240603
  3. INFLECTRA [Suspect]
     Active Substance: INFLIXIMAB-DYYB
     Dosage: 5 MG/KG, Q 0, 2, 6, THEN EVERY 4 WEEKS
     Route: 042
     Dates: start: 20240703
  4. INFLECTRA [Suspect]
     Active Substance: INFLIXIMAB-DYYB
     Dosage: 333 MG, 6 WEEKS 5 DAYS (5 MG/KG 0, 2, 6, THEN EVERY 4 WEEKS)
     Route: 042
     Dates: start: 20240816
  5. INFLECTRA [Suspect]
     Active Substance: INFLIXIMAB-DYYB
     Dosage: 333 MG, 6 WEEKS 5 DAYS (5 MG/KG 0, 2, 6, THEN EVERY 4 WEEKS)
     Route: 042
     Dates: start: 20240816
  6. INFLECTRA [Suspect]
     Active Substance: INFLIXIMAB-DYYB
     Dosage: 333 MG, 6 WEEKS 5 DAYS (5 MG/KG 0, 2, 6, THEN EVERY 4 WEEKS)
     Route: 042
     Dates: start: 20240816
  7. INFLECTRA [Suspect]
     Active Substance: INFLIXIMAB-DYYB
     Dosage: 5 MG/KG, Q 0, 2, 6, THEN EVERY 4 WEEKS
     Route: 042
     Dates: start: 20240913
  8. ACETAMINOPHEN [Concomitant]
     Active Substance: ACETAMINOPHEN
     Indication: Premedication
     Dosage: 650 MG
     Route: 048
     Dates: start: 20240816, end: 20240816
  9. DIPHENHYDRAMINE HYDROCHLORIDE [Concomitant]
     Active Substance: DIPHENHYDRAMINE HYDROCHLORIDE
     Dosage: 50 MG
     Route: 042
     Dates: start: 20240816, end: 20240816

REACTIONS (6)
  - Brain operation [Unknown]
  - Sinus operation [Unknown]
  - Arthropod sting [Unknown]
  - Sinusitis [Not Recovered/Not Resolved]
  - Blood pressure diastolic decreased [Unknown]
  - Heart rate decreased [Unknown]

NARRATIVE: CASE EVENT DATE: 20240101
